FAERS Safety Report 9699716 (Version 1)
Quarter: 2013Q4

REPORT INFORMATION
  Report Type: Spontaneous
  Country: US (occurrence: US)
  Receive Date: 20131120
  Receipt Date: 20131120
  Transmission Date: 20140711
  Serious: No
  Sender: FDA-Public Use
  Company Number: US-TEVA-371503USA

PATIENT
  Sex: Female
  Weight: 59.02 kg

DRUGS (3)
  1. PARAGARD 380A [Suspect]
     Indication: CONTRACEPTION
     Route: 015
     Dates: start: 201111, end: 20121020
  2. LEXAPRO [Concomitant]
     Indication: ANXIETY
  3. ADDERALL [Concomitant]
     Indication: ATTENTION DEFICIT/HYPERACTIVITY DISORDER
     Dosage: 30

REACTIONS (4)
  - Menorrhagia [Recovered/Resolved]
  - Uterine spasm [Recovered/Resolved]
  - Back pain [Recovered/Resolved]
  - Pelvic pain [Recovered/Resolved]
